FAERS Safety Report 25431264 (Version 2)
Quarter: 2025Q2

REPORT INFORMATION
  Report Type: Report from Study
  Country: US (occurrence: US)
  Receive Date: 20250613
  Receipt Date: 20250620
  Transmission Date: 20250717
  Serious: Yes (Other)
  Sender: ABBVIE
  Company Number: US-ABBVIE-6129884

PATIENT
  Age: 65 Year
  Sex: Female
  Weight: 40.369 kg

DRUGS (8)
  1. BOTOX [Suspect]
     Active Substance: ONABOTULINUMTOXINA
     Indication: Migraine
     Route: 030
     Dates: start: 20240923, end: 20240923
  2. AJOVY [Concomitant]
     Active Substance: FREMANEZUMAB-VFRM
     Indication: Migraine
  3. ASPIRIN [Concomitant]
     Active Substance: ASPIRIN
     Indication: Haematological malignancy
  4. ENBREL [Concomitant]
     Active Substance: ETANERCEPT
     Indication: Product used for unknown indication
  5. HYDROXYUREA [Suspect]
     Active Substance: HYDROXYUREA
     Indication: Product used for unknown indication
     Route: 065
  6. REMICADE [Concomitant]
     Active Substance: INFLIXIMAB
     Indication: Product used for unknown indication
  7. TRIAMCINOLONE ACETONIDE [Concomitant]
     Active Substance: TRIAMCINOLONE ACETONIDE
     Indication: Psoriasis
  8. METOPROLOL [Concomitant]
     Active Substance: METOPROLOL
     Indication: Tachycardia

REACTIONS (11)
  - Polycythaemia vera [Recovering/Resolving]
  - Visual impairment [Not Recovered/Not Resolved]
  - Psoriasis [Not Recovered/Not Resolved]
  - Eye inflammation [Unknown]
  - Red blood cell count decreased [Not Recovered/Not Resolved]
  - Haematocrit increased [Recovering/Resolving]
  - Migraine [Not Recovered/Not Resolved]
  - Dry skin [Not Recovered/Not Resolved]
  - Eye inflammation [Not Recovered/Not Resolved]
  - Platelet count increased [Recovering/Resolving]
  - Visual impairment [Not Recovered/Not Resolved]

NARRATIVE: CASE EVENT DATE: 20230101
